FAERS Safety Report 6717165-9 (Version None)
Quarter: 2010Q2

REPORT INFORMATION
  Report Type: 
  Country: None (occurrence: None)
  Receive Date: 20100510
  Receipt Date: 20100426
  Transmission Date: 20101027
  Serious: Yes (Disabling)
  Sender: FDA-Public Use
  Company Number: PHHY2010US23718

PATIENT
  Sex: Male
  Weight: 88.6 kg

DRUGS (5)
  1. GLEEVEC [Suspect]
     Indication: GASTROINTESTINAL STROMAL TUMOUR
     Dosage: 400 MG DAILY
     Route: 048
     Dates: start: 20100115
  2. GABAPENTIN [Concomitant]
     Indication: BACK PAIN
     Dosage: 600 MG, TID
     Route: 048
  3. BUPIVACAINE HCL [Concomitant]
     Indication: BACK PAIN
     Dosage: 1 MG, TID
     Route: 048
  4. VITAMIN D [Concomitant]
     Dosage: 400 UNITS DAILY
     Route: 048
  5. LOVAZA [Concomitant]
     Dosage: 1000 MG DAILY
     Route: 048

REACTIONS (2)
  - CLUSTER HEADACHE [None]
  - PAIN [None]
